FAERS Safety Report 18220635 (Version 1)
Quarter: 2020Q3

REPORT INFORMATION
  Report Type: Report from Study
  Country: None (occurrence: US)
  Receive Date: 20200902
  Receipt Date: 20200902
  Transmission Date: 20201103
  Serious: Yes (Death, Hospitalization)
  Sender: FDA-Public Use
  Company Number: US-ABBVIE-20K-163-3548116-00

PATIENT
  Age: 90 Year
  Sex: Female

DRUGS (1)
  1. VENCLEXTA [Suspect]
     Active Substance: VENETOCLAX
     Indication: CHRONIC LYMPHOCYTIC LEUKAEMIA
     Route: 048
     Dates: start: 20200824, end: 20200828

REACTIONS (8)
  - Urine output decreased [Fatal]
  - Dyspnoea [Fatal]
  - Agitation [Unknown]
  - Pyrexia [Fatal]
  - Vomiting [Fatal]
  - Mental disorder [Unknown]
  - Breath sounds abnormal [Fatal]
  - Hospitalisation [Unknown]

NARRATIVE: CASE EVENT DATE: 202008
